FAERS Safety Report 24077130 (Version 1)
Quarter: 2024Q3

REPORT INFORMATION
  Report Type: Spontaneous
  Country: US (occurrence: US)
  Receive Date: 20240711
  Receipt Date: 20240711
  Transmission Date: 20241017
  Serious: Yes (Death, Other)
  Sender: ARGENX BVBA
  Company Number: US-ARGENX-2024-ARGX-US005250

PATIENT

DRUGS (1)
  1. VYVGART [Suspect]
     Active Substance: EFGARTIGIMOD ALFA-FCAB
     Indication: Product used for unknown indication
     Dosage: 400 MG IN 20 ML SOLUTION
     Route: 042

REACTIONS (1)
  - Death [Fatal]
